FAERS Safety Report 15139025 (Version 2)
Quarter: 2018Q3

REPORT INFORMATION
  Report Type: Report from Study
  Country: DE (occurrence: DE)
  Receive Date: 20180713
  Receipt Date: 20180719
  Transmission Date: 20181010
  Serious: Yes (Hospitalization, Other)
  Sender: FDA-Public Use
  Company Number: DE-TEVA-2018-DE-923064

PATIENT
  Age: 70 Year
  Sex: Female
  Weight: 75 kg

DRUGS (39)
  1. 5?FU [Suspect]
     Active Substance: FLUOROURACIL
     Indication: COLON CANCER
     Route: 041
     Dates: start: 20140310, end: 20140709
  2. 5?FU [Suspect]
     Active Substance: FLUOROURACIL
     Dosage: EXCEPT ON 16/DEC/2013 DOSE WAS 712 MG,
     Route: 040
     Dates: start: 20131007, end: 20140225
  3. VOMEX (UNK INGREDIENTS) [Concomitant]
     Indication: NAUSEA
     Route: 054
     Dates: start: 20131007
  4. 5?FU [Suspect]
     Active Substance: FLUOROURACIL
     Dosage: 4344 MILLIGRAM DAILY; DAILY DOSE: 4344 MG MILLGRAM(S) EVERY 2 WEEKS
     Route: 041
     Dates: start: 20131007, end: 20140225
  5. 5?FU [Suspect]
     Active Substance: FLUOROURACIL
     Dosage: 113.8 MILLIGRAM DAILY;  DAILY DOSE: 113.8 MG MILLGRAM(S) EVERY 2 WEEKS
     Route: 040
     Dates: start: 20140414, end: 20140414
  6. LYRICA [Concomitant]
     Active Substance: PREGABALIN
     Indication: PAIN
     Dosage: 100 MILLIGRAM DAILY; DAILY DOSE: 100 MG MILLGRAM(S) EVERY DAYS
     Route: 048
     Dates: start: 20141128
  7. ALOXI [Concomitant]
     Active Substance: PALONOSETRON HYDROCHLORIDE
     Indication: NAUSEA
  8. ASPIRIN. [Concomitant]
     Active Substance: ASPIRIN
     Indication: ATRIAL FIBRILLATION
     Dosage: 100 MILLIGRAM DAILY;  DAILY DOSE: 100 MG MILLGRAM(S) EVERY DAYS
     Route: 048
     Dates: start: 20130902
  9. ASPIRIN. [Concomitant]
     Active Substance: ASPIRIN
     Indication: CORONARY ARTERY DISEASE
  10. FOSFOMYCIN [Concomitant]
     Active Substance: FOSFOMYCIN
     Indication: CYSTITIS
     Route: 048
     Dates: start: 20131118, end: 20131118
  11. PREDNISOLON [Concomitant]
     Active Substance: PREDNISOLONE
     Indication: WEIGHT DECREASED
     Route: 048
     Dates: start: 20140723
  12. ZOFRAN [Concomitant]
     Active Substance: ONDANSETRON HYDROCHLORIDE
     Indication: NAUSEA
     Dosage: 8 MILLIGRAM DAILY; MAX, AS REQUIRED
     Route: 048
     Dates: start: 20131216
  13. MCP [Concomitant]
     Active Substance: METOCLOPRAMIDE HYDROCHLORIDE
     Dosage: 90 GTT DAILY; AS REQUIRED
     Route: 048
     Dates: start: 20140210
  14. CIPROFLOXACIN. [Concomitant]
     Active Substance: CIPROFLOXACIN
     Indication: CYSTITIS
     Dosage: 500 MILLIGRAM DAILY; DAILY DOSE: 500 MG MILLGRAM(S) EVERY DAYS
     Route: 042
     Dates: start: 20140414, end: 20140419
  15. DEXAMETHASON [Concomitant]
     Active Substance: DEXAMETHASONE
     Indication: VOMITING
     Dosage: DAILY DOSE: 8 MG MILLGRAM(S) EVERY DAYS
     Route: 048
     Dates: start: 20140224, end: 20140228
  16. BISOPROLOL [Concomitant]
     Active Substance: BISOPROLOL
     Indication: HYPERTENSION
     Dosage: 2.5 MILLIGRAM DAILY; DAILY DOSE: 2.5 MG MILLGRAM(S) EVERY DAYS
     Route: 048
     Dates: start: 20130101
  17. 5?FU [Suspect]
     Active Substance: FLUOROURACIL
     Dosage: 688 MILLIGRAM DAILY; DAILY DOSE: 688 MG MILLGRAM(S) EVERY 2 WEEKS
     Route: 040
     Dates: start: 20140324, end: 20140324
  18. 5?FU [Suspect]
     Active Substance: FLUOROURACIL
     Dosage: 4128 MILLIGRAM DAILY;  DAILY DOSE: 4128 MG MILLGRAM(S) EVERY 2 WEEKS
     Route: 041
     Dates: start: 20140310, end: 20140709
  19. 5?FU [Suspect]
     Active Substance: FLUOROURACIL
     Dosage: ON 14?APR?2014: 113.8 MG,
     Route: 040
     Dates: start: 20140310, end: 20140708
  20. FORTECORTIN [Concomitant]
     Active Substance: DEXAMETHASONE
     Indication: VOMITING
     Dosage: 4 MILLIGRAM DAILY; DAY 2 TO DAY 5 AFTER CHEMOTHERAPY
     Route: 048
     Dates: start: 20140414
  21. FORTIMEL [Concomitant]
     Active Substance: DIETARY SUPPLEMENT
     Indication: WEIGHT DECREASED
     Dosage: 1 DOSAGE FORMS DAILY; DAILY DOSE: 1 DF DOSAGE FORM EVERY DAYS
     Route: 048
     Dates: start: 20140424
  22. 5?FU [Suspect]
     Active Substance: FLUOROURACIL
     Dosage: EXCEPT ON 10?MAR?2014 : 688 MG
     Route: 040
     Dates: start: 20140310
  23. IRINOTECAN [Suspect]
     Active Substance: IRINOTECAN
     Indication: COLON CANCER
     Dosage: 247.7 ? 326 MG?216 ? 326 MG
     Route: 042
     Dates: start: 20131007, end: 20140708
  24. AVASTIN [Suspect]
     Active Substance: BEVACIZUMAB
     Indication: COLON CANCER
     Dosage: 370 ? 325 MG
     Route: 042
     Dates: start: 20131007, end: 20140708
  25. VOMEX (UNK INGREDIENTS) [Concomitant]
     Dosage: AS NEEDED
     Route: 054
     Dates: start: 20140610
  26. PREDNISOLON [Concomitant]
     Active Substance: PREDNISOLONE
     Indication: FIBROMYALGIA
     Dosage: DAILY DOSE: 5 MG MILLGRAM(S) EVERY DAYS,
     Route: 048
     Dates: start: 20130902
  27. FOLINIC ACID [Suspect]
     Active Substance: LEUCOVORIN
     Indication: COLON CANCER
     Dosage: 724 ? 688 MG
     Route: 042
     Dates: start: 20131007, end: 20140708
  28. ATROPIN [Concomitant]
     Active Substance: ATROPINE
     Indication: CHOLINERGIC SYNDROME
     Dosage: .25 MILLIGRAM DAILY; BEFORE IRINOTECAN
     Route: 058
     Dates: start: 20131007
  29. DICLOFENAC [Concomitant]
     Active Substance: DICLOFENAC
     Dosage: AS NEEDED
     Route: 048
     Dates: start: 20140723
  30. PROPAFENON [Concomitant]
     Active Substance: PROPAFENONE
     Indication: TACHYARRHYTHMIA
     Dosage: 300 MILLIGRAM DAILY; DAILY DOSE: 300 MG MILLGRAM(S) EVERY DAYS
     Route: 048
     Dates: start: 20130902
  31. SIMVASTATIN. [Concomitant]
     Active Substance: SIMVASTATIN
     Indication: HYPERCHOLESTEROLAEMIA
     Route: 048
     Dates: start: 20130902, end: 20140414
  32. ALOXI [Concomitant]
     Active Substance: PALONOSETRON HYDROCHLORIDE
     Indication: VOMITING
     Dosage: BEFORE CHEMOTHERAPY FROM CYCLE 10
     Route: 042
     Dates: start: 20140224, end: 20140708
  33. VERGENTAN [Concomitant]
     Active Substance: ALIZAPRIDE HYDROCHLORIDE
     Indication: NAUSEA
     Dosage: 150 MILLIGRAM DAILY; ON D2 OF EACH CYCLE
     Route: 048
     Dates: start: 20131007
  34. ALLOPURINOL. [Concomitant]
     Active Substance: ALLOPURINOL
     Indication: HYPERURICAEMIA
     Route: 048
     Dates: start: 20140902
  35. IMODIUM [Concomitant]
     Active Substance: LOPERAMIDE HYDROCHLORIDE
     Indication: DIARRHOEA
     Route: 054
     Dates: start: 20140303
  36. FORTECORTIN [Concomitant]
     Active Substance: DEXAMETHASONE
     Indication: NAUSEA
     Dosage: BEFORE CHEMOTHERAPY
     Route: 042
     Dates: start: 20131007
  37. 5?FU [Suspect]
     Active Substance: FLUOROURACIL
     Route: 040
     Dates: start: 20140506, end: 20140708
  38. 5?FU [Suspect]
     Active Substance: FLUOROURACIL
     Dosage: EXCEPT ON 16/DEC/2013 DOSE WAS 712 MG
     Route: 040
     Dates: start: 20130310
  39. KEVATRIL [Concomitant]
     Active Substance: GRANISETRON HYDROCHLORIDE
     Indication: NAUSEA
     Dosage: 3 MILLIGRAM DAILY; BEFORE CHEMOTHERAPY
     Route: 042
     Dates: start: 20131007

REACTIONS (9)
  - Decreased appetite [Recovered/Resolved]
  - Duodenal ulcer [Unknown]
  - General physical health deterioration [Recovered/Resolved]
  - Nausea [Recovered/Resolved]
  - Vomiting [Recovered/Resolved]
  - Upper gastrointestinal haemorrhage [Recovered/Resolved]
  - Helicobacter gastritis [Unknown]
  - Malignant neoplasm progression [Not Recovered/Not Resolved]
  - Spinal pain [Unknown]

NARRATIVE: CASE EVENT DATE: 20140506
